FAERS Safety Report 10957046 (Version 1)
Quarter: 2015Q1

REPORT INFORMATION
  Report Type: Spontaneous
  Country: US (occurrence: None)
  Receive Date: 20150325
  Receipt Date: 20150325
  Transmission Date: 20150721
  Serious: Yes (Life-Threatening, Disabling)
  Sender: FDA-Public Use
  Company Number: None

PATIENT
  Age: 88 Year
  Sex: Female
  Weight: 80.74 kg

DRUGS (15)
  1. CRANB ERRY [Concomitant]
  2. HOSPICE [Concomitant]
  3. COZAAR [Concomitant]
     Active Substance: LOSARTAN POTASSIUM
  4. LUMIGAN [Concomitant]
     Active Substance: BIMATOPROST
  5. ROCEPHIN [Suspect]
     Active Substance: CEFTRIAXONE SODIUM
     Indication: URINARY TRACT INFECTION
     Dosage: INTO A VEIN
     Dates: start: 20140827, end: 20140829
  6. PROBIOTICS [Concomitant]
     Active Substance: PROBIOTICS NOS
  7. OXYGEN. [Concomitant]
     Active Substance: OXYGEN
  8. TRUSOPT EYEDROPS [Concomitant]
  9. LASIX [Concomitant]
     Active Substance: FUROSEMIDE
  10. ARICEPT [Concomitant]
     Active Substance: DONEPEZIL HYDROCHLORIDE
  11. LIPITOR [Concomitant]
     Active Substance: ATORVASTATIN CALCIUM
  12. BRODA CHAIR [Concomitant]
  13. EZ LIFT FOR TRANSFERRING [Concomitant]
  14. ALPHAGHAN [Concomitant]
  15. SENOKOT [Concomitant]
     Active Substance: SENNOSIDES

REACTIONS (6)
  - General physical health deterioration [None]
  - Muscular weakness [None]
  - Oxygen saturation decreased [None]
  - Speech disorder [None]
  - Weight increased [None]
  - Fall [None]

NARRATIVE: CASE EVENT DATE: 20140829
